FAERS Safety Report 17420958 (Version 1)
Quarter: 2020Q1

REPORT INFORMATION
  Report Type: Spontaneous
  Country: US (occurrence: US)
  Receive Date: 20200214
  Receipt Date: 20200214
  Transmission Date: 20200409
  Serious: No
  Sender: FDA-Public Use
  Company Number: US-THERAPEUTICSMD-2019TMD05086

PATIENT
  Sex: Female

DRUGS (2)
  1. BIJUVA [Suspect]
     Active Substance: ESTRADIOL\PROGESTERONE
     Indication: HOT FLUSH
     Dosage: 1 CAPSULES, 1X/DAY
     Route: 048
     Dates: start: 2019, end: 2019
  2. BIJUVA [Suspect]
     Active Substance: ESTRADIOL\PROGESTERONE
     Dosage: 1 CAPSULES, 1X/DAY
     Route: 048
     Dates: start: 2019, end: 20191210

REACTIONS (6)
  - Fatigue [Not Recovered/Not Resolved]
  - Product dose omission [Recovered/Resolved]
  - Feeling abnormal [Not Recovered/Not Resolved]
  - Headache [Not Recovered/Not Resolved]
  - Abdominal discomfort [Not Recovered/Not Resolved]
  - Insomnia [Not Recovered/Not Resolved]

NARRATIVE: CASE EVENT DATE: 2019
